FAERS Safety Report 9051938 (Version 1)
Quarter: 2013Q1

REPORT INFORMATION
  Report Type: Spontaneous
  Country: US (occurrence: None)
  Receive Date: 20130130
  Receipt Date: 20130130
  Transmission Date: 20140127
  Serious: Yes (Hospitalization)
  Sender: FDA-Public Use
  Company Number: None

PATIENT
  Sex: Female

DRUGS (1)
  1. CISPLATIN [Suspect]

REACTIONS (12)
  - Blood glucose increased [None]
  - Drug dose omission [None]
  - Hypertensive crisis [None]
  - Vaginal haemorrhage [None]
  - Blood pressure decreased [None]
  - Blood culture positive [None]
  - Bacterial infection [None]
  - Chest pain [None]
  - Nausea [None]
  - Hyperhidrosis [None]
  - Palpitations [None]
  - Troponin increased [None]
